FAERS Safety Report 15837561 (Version 3)
Quarter: 2019Q2

REPORT INFORMATION
  Report Type: Spontaneous
  Country: DE (occurrence: DE)
  Receive Date: 20190117
  Receipt Date: 20190425
  Transmission Date: 20190711
  Serious: Yes (Other)
  Sender: FDA-Public Use
  Company Number: DE-IPSEN BIOPHARMACEUTICALS, INC.-2019-00686

PATIENT
  Age: 79 Year
  Sex: Male
  Weight: 73 kg

DRUGS (40)
  1. ONIVYDE [Suspect]
     Active Substance: IRINOTECAN HYDROCHLORIDE
     Indication: OFF LABEL USE
     Dosage: 336 MG, UNK
     Route: 065
  2. PANITUMUMAB [Suspect]
     Active Substance: PANITUMUMAB
     Indication: COLORECTAL CANCER METASTATIC
     Dosage: 440 MG, UNK
     Route: 042
  3. FLUOROURACIL. [Suspect]
     Active Substance: FLUOROURACIL
     Dosage: 748 MG, UNK
     Route: 042
  4. FLUOROURACIL. [Suspect]
     Active Substance: FLUOROURACIL
     Dosage: 4488 MG, UNK
     Route: 042
  5. MOVICOL [Concomitant]
     Active Substance: POLYETHYLENE GLYCOL 3350\POTASSIUM CHLORIDE\SODIUM BICARBONATE\SODIUM CHLORIDE
     Indication: CONSTIPATION PROPHYLAXIS
     Route: 048
  6. SULFAMETHOXAZOLE [Concomitant]
     Active Substance: SULFAMETHOXAZOLE
     Indication: URINARY TRACT INFECTION
     Dates: start: 20180614
  7. PANITUMUMAB [Suspect]
     Active Substance: PANITUMUMAB
     Dosage: 80 MG, UNK
     Route: 042
  8. FOLINIC ACID [Suspect]
     Active Substance: LEUCOVORIN
     Indication: COLORECTAL CANCER METASTATIC
     Dosage: 750 MG, UNK
     Route: 065
  9. FLOXAL [Concomitant]
     Active Substance: OFLOXACIN
     Dosage: EYE OINTMENT
  10. MCP-RATIOPHARM [Concomitant]
     Active Substance: METOCLOPRAMIDE HYDROCHLORIDE
     Indication: NAUSEA
     Dosage: AS NECESSARY
  11. NOVAMINSULFON-RATIOPHARM [Concomitant]
     Active Substance: METAMIZOLE
     Indication: PAIN
     Route: 048
  12. PANTOZOL [Concomitant]
     Active Substance: PANTOPRAZOLE SODIUM
     Indication: PROPHYLAXIS
     Route: 048
     Dates: start: 201805
  13. DELIX [Concomitant]
     Indication: HYPERTENSION
     Dosage: 5 MG, QD AND BID, ORALLY
     Route: 048
  14. MAGNESIUM VERLA [Concomitant]
     Active Substance: MAGNESIUM
     Dates: start: 20181203
  15. CANDIO-HERMAL [Concomitant]
     Active Substance: NYSTATIN
     Indication: PROPHYLAXIS
  16. AKNEMYCIN [Concomitant]
     Indication: DERMATITIS ACNEIFORM
     Route: 061
     Dates: start: 20180801, end: 20190108
  17. DERMATOP [Concomitant]
     Active Substance: PREDNICARBATE
     Indication: DERMATITIS ACNEIFORM
     Dates: start: 20180801, end: 20190108
  18. LOPERAMIDE [Concomitant]
     Active Substance: LOPERAMIDE
     Indication: DIARRHOEA
     Dosage: UNKNOWN DOSAGE, TRAOPICAL
     Route: 061
     Dates: start: 20180711, end: 20181002
  19. PANITUMUMAB [Suspect]
     Active Substance: PANITUMUMAB
     Dosage: 350 MG, UNK
     Route: 042
  20. FLUOROURACIL. [Suspect]
     Active Substance: FLUOROURACIL
     Dosage: 4500 MG, UNK
     Route: 042
  21. FLOXAL [Concomitant]
     Active Substance: OFLOXACIN
     Indication: CONJUNCTIVITIS
     Dosage: EYE OINTMENT
     Dates: start: 20180919, end: 20181009
  22. DUODART [Concomitant]
     Active Substance: DUTASTERIDE\TAMSULOSIN
     Indication: BENIGN PROSTATIC HYPERPLASIA
     Route: 048
  23. FUSIDIC ACID [Concomitant]
     Active Substance: FUSIDIC ACID
     Indication: PARONYCHIA
     Dates: start: 20181002, end: 20190108
  24. ONIVYDE [Suspect]
     Active Substance: IRINOTECAN HYDROCHLORIDE
     Indication: COLORECTAL CANCER METASTATIC
     Dosage: 340 MG, UNK
     Route: 065
  25. PANITUMUMAB [Suspect]
     Active Substance: PANITUMUMAB
     Dosage: 350 MG, UNK
     Route: 042
  26. HISTOACRYL [Concomitant]
     Active Substance: ENBUCRILATE
     Indication: PARONYCHIA
     Route: 061
     Dates: start: 20181120
  27. GLANDOMED [Concomitant]
     Indication: STOMATITIS
  28. RIVANOL [Concomitant]
     Active Substance: ETHACRIDINE LACTATE
     Indication: PARONYCHIA
     Dosage: UNKNOWN DOSAGE
     Dates: start: 20181120, end: 20190108
  29. FLUOROURACIL. [Suspect]
     Active Substance: FLUOROURACIL
     Indication: COLORECTAL CANCER METASTATIC
     Dosage: 4490 MG
     Route: 042
  30. FLUOROURACIL. [Suspect]
     Active Substance: FLUOROURACIL
     Dosage: 4500 MG, UNK
     Route: 042
  31. FOLINIC ACID [Suspect]
     Active Substance: LEUCOVORIN
     Dosage: 748 MG, UNK
     Route: 065
  32. MINOCYCLINE [Concomitant]
     Active Substance: MINOCYCLINE\MINOCYCLINE HYDROCHLORIDE
     Indication: DERMATITIS ACNEIFORM
     Route: 048
     Dates: start: 20180801, end: 20190108
  33. MUCOFALK [PLANTAGO AFRA SEED HUSK] [Concomitant]
     Active Substance: PLANTAGO AFRA SEED
     Dates: start: 20180801, end: 20181002
  34. EDOXABAN TOSILATE [Concomitant]
     Active Substance: EDOXABAN TOSYLATE
     Indication: CARDIAC ABLATION
     Route: 048
     Dates: start: 201708
  35. FLUOROURACIL. [Suspect]
     Active Substance: FLUOROURACIL
     Dosage: 4490 MG, UNK
     Route: 042
  36. MAGNESIUM [Concomitant]
     Active Substance: MAGNESIUM
     Indication: HYPOMAGNESAEMIA
     Route: 048
     Dates: start: 20180821
  37. FLUOROURACIL. [Suspect]
     Active Substance: FLUOROURACIL
     Dosage: 750 MG, UNK
     Route: 042
  38. FLUOROURACIL. [Suspect]
     Active Substance: FLUOROURACIL
     Dosage: 4500 MG, UNK
     Route: 042
  39. DELIX [Concomitant]
     Route: 048
  40. ZOPICLONE [Concomitant]
     Active Substance: ZOPICLONE
     Indication: SLEEP DISORDER
     Route: 048

REACTIONS (1)
  - Ophthalmic herpes zoster [Recovered/Resolved]

NARRATIVE: CASE EVENT DATE: 20181211
